FAERS Safety Report 17848199 (Version 3)
Quarter: 2020Q2

REPORT INFORMATION
  Report Type: Report from Study
  Country: None (occurrence: US)
  Receive Date: 20200601
  Receipt Date: 20200628
  Transmission Date: 20200714
  Serious: Yes (Other)
  Sender: FDA-Public Use
  Company Number: US-ABBVIE-20K-163-3421965-00

PATIENT
  Age: 74 Year
  Sex: Female
  Weight: 77.18 kg

DRUGS (4)
  1. SKYRIZI [Suspect]
     Active Substance: RISANKIZUMAB-RZAA
     Route: 058
     Dates: start: 201910, end: 201910
  2. SKYRIZI [Suspect]
     Active Substance: RISANKIZUMAB-RZAA
     Indication: PSORIASIS
     Route: 058
     Dates: start: 201909, end: 201909
  3. SKYRIZI [Suspect]
     Active Substance: RISANKIZUMAB-RZAA
     Route: 058
     Dates: start: 202004, end: 202004
  4. SKYRIZI [Suspect]
     Active Substance: RISANKIZUMAB-RZAA
     Route: 058
     Dates: start: 202001, end: 202001

REACTIONS (2)
  - Deafness [Not Recovered/Not Resolved]
  - Temporal arteritis [Not Recovered/Not Resolved]

NARRATIVE: CASE EVENT DATE: 20200320
